FAERS Safety Report 6619351-5 (Version None)
Quarter: 2010Q1

REPORT INFORMATION
  Report Type: 
  Country: None (occurrence: None)
  Receive Date: 20100308
  Receipt Date: 20090611
  Transmission Date: 20100710
  Serious: No
  Sender: FDA-Public Use
  Company Number: US-TYCO HEALTHCARE/MALLINCKRODT-T200901185

PATIENT
  Age: 64 Year
  Sex: Female
  Weight: 72.6 kg

DRUGS (9)
  1. RESTORIL [Suspect]
     Indication: INSOMNIA
  2. PREVACID [Concomitant]
  3. EXFORGE [Concomitant]
  4. LOPRESSOR [Concomitant]
  5. FLEXERIL [Concomitant]
  6. ASPIRIN [Concomitant]
  7. PREDNISONE [Concomitant]
  8. NOVOLOG [Concomitant]
  9. LANTUS [Concomitant]

REACTIONS (3)
  - DIZZINESS [None]
  - FEELING DRUNK [None]
  - NAUSEA [None]
